FAERS Safety Report 11321939 (Version 1)
Quarter: 2015Q3

REPORT INFORMATION
  Report Type: Spontaneous
  Country: US (occurrence: US)
  Receive Date: 20150729
  Receipt Date: 20150729
  Transmission Date: 20151125
  Serious: No
  Sender: FDA-Public Use
  Company Number: ALCN2015US004546

PATIENT
  Sex: Female

DRUGS (2)
  1. NATACYN [Suspect]
     Active Substance: NATAMYCIN
     Indication: EYE INFECTION FUNGAL
     Dosage: 1 GTT, QH
     Route: 047
     Dates: start: 20150709, end: 20150711
  2. NATACYN [Suspect]
     Active Substance: NATAMYCIN
     Indication: INJURY CORNEAL

REACTIONS (5)
  - Drug hypersensitivity [Recovering/Resolving]
  - Eye pain [Recovering/Resolving]
  - Foreign body sensation in eyes [Recovered/Resolved]
  - Trigeminal neuralgia [Recovering/Resolving]
  - Pain in jaw [Recovering/Resolving]

NARRATIVE: CASE EVENT DATE: 20150709
